FAERS Safety Report 8436790-0 (Version None)
Quarter: 2012Q2

REPORT INFORMATION
  Report Type: 
  Country: None (occurrence: None)
  Receive Date: 20120614
  Receipt Date: 20120608
  Transmission Date: 20120825
  Serious: Yes (Hospitalization)
  Sender: FDA-Public Use
  Company Number: US-ALEXION-A201201088

PATIENT
  Sex: Female
  Weight: 67 kg

DRUGS (15)
  1. NORVASC [Concomitant]
     Indication: BLOOD PRESSURE INCREASED
     Dosage: 10 MG, QD
     Route: 048
  2. CLONIDINE [Concomitant]
     Indication: BLOOD PRESSURE INCREASED
     Dosage: 0.2 MG, TID
     Route: 048
  3. PRILOSEC [Concomitant]
     Indication: GASTROOESOPHAGEAL REFLUX DISEASE
     Dosage: 20 MG, QD
     Route: 048
  4. SOLIRIS [Suspect]
     Indication: HAEMOLYTIC URAEMIC SYNDROME
     Dosage: 1200 MG, Q2W
     Route: 042
     Dates: start: 20120531
  5. SOLIRIS [Suspect]
     Indication: PLATELET COUNT DECREASED
  6. CARDURA [Concomitant]
     Indication: BLOOD PRESSURE INCREASED
     Dosage: 4 MG, BID
     Route: 048
  7. VITAMIN D [Concomitant]
     Indication: SUPPLEMENTATION THERAPY
     Dosage: 5000 U QD
     Route: 048
  8. CALCIUM CARBONATE [Concomitant]
     Indication: BLOOD PHOSPHORUS ABNORMAL
     Dosage: 2 TABS AFTER EACH MEAL
     Route: 048
  9. PROCRIT [Concomitant]
     Indication: BLOOD ERYTHROPOIETIN ABNORMAL
     Dosage: 10000 U MONDAY, WEDNESDAY, FRIDAY WITH DIALYSIS
     Route: 042
  10. PREDNISONE TAB [Concomitant]
     Indication: HAEMOLYTIC URAEMIC SYNDROME
     Dosage: 40 MG, BID
     Route: 048
  11. SOLIRIS [Suspect]
     Indication: IDIOPATHIC THROMBOCYTOPENIC PURPURA
     Dosage: 600 MG, QD - SUPPLEMENTAL INFUSION AFTER EVERY PLASMA EXCHANGE
     Route: 042
  12. LEUCOVORIN CALCIUM [Concomitant]
     Indication: VITAMIN SUPPLEMENTATION
     Dosage: 2 MG, QD
     Route: 048
  13. HYDRALAZINE HYDROCHLORIDE [Concomitant]
     Indication: BLOOD PRESSURE INCREASED
     Dosage: 75 MG, QID
     Route: 048
  14. LABETALOL HYDROCHLORIDE [Concomitant]
     Indication: BLOOD PRESSURE INCREASED
     Dosage: 300 MG, TID
     Route: 048
  15. CULTURELLE [Concomitant]
     Indication: PROBIOTIC THERAPY
     Dosage: 1 TAB QD
     Route: 048

REACTIONS (1)
  - NO ADVERSE EVENT [None]
